FAERS Safety Report 19801603 (Version 1)
Quarter: 2021Q3

REPORT INFORMATION
  Report Type: Report from Study
  Country: None (occurrence: HU)
  Receive Date: 20210907
  Receipt Date: 20210907
  Transmission Date: 20211014
  Serious: Yes (Hospitalization)
  Sender: FDA-Public Use
  Company Number: HU-ABBVIE-21K-076-4068769-00

PATIENT
  Sex: Female

DRUGS (13)
  1. DUODOPA [Suspect]
     Active Substance: CARBIDOPA\LEVODOPA
     Indication: PARKINSON^S DISEASE
     Dosage: MORNING: 5.2 ML; CD DAILY: 4.1 ML/HOUR; AT NIGHT: 3.5 ML/HOUR; EXTRA DOSE: 3.0 ML
     Route: 050
     Dates: start: 20200617
  2. TENAXUM [Concomitant]
     Active Substance: RILMENIDINE
     Indication: HYPERTENSION
     Route: 048
     Dates: start: 2018
  3. NEBILET [Concomitant]
     Active Substance: NEBIVOLOL
     Indication: MYOCARDIAL ISCHAEMIA
     Dosage: HALF TABLET TWO TIMES DAILY
     Dates: start: 2015
  4. COVERCARD [Concomitant]
     Active Substance: AMLODIPINE BESYLATE\PERINDOPRIL ARGININE
     Indication: MYOCARDIAL ISCHAEMIA
     Dosage: 5 MG PERINDOPRIL, 5 MG AMLODIPINE/TABLET
     Route: 048
     Dates: start: 2015
  5. NEUPRO [Concomitant]
     Active Substance: ROTIGOTINE
     Indication: PARKINSON^S DISEASE
     Dosage: 8 MG/24 HOURS
     Route: 062
     Dates: start: 2018
  6. FLECTOR RAPID [Concomitant]
     Indication: BACK PAIN
     Route: 048
     Dates: start: 2019
  7. KALDYUM [Concomitant]
     Active Substance: POTASSIUM CHLORIDE
     Indication: PROPHYLAXIS
     Route: 048
  8. MIRZATEN [Concomitant]
     Active Substance: MIRTAZAPINE
     Indication: AFFECTIVE DISORDER
     Route: 048
     Dates: start: 2018
  9. DUODOPA [Suspect]
     Active Substance: CARBIDOPA\LEVODOPA
  10. XANAX [Concomitant]
     Active Substance: ALPRAZOLAM
     Indication: STRESS MANAGEMENT
     Route: 048
     Dates: start: 2010
  11. PANTOPRAZOL [Concomitant]
     Active Substance: PANTOPRAZOLE SODIUM
     Indication: PROPHYLAXIS
     Route: 048
     Dates: start: 2010
  12. FUROSEMID [Concomitant]
     Active Substance: FUROSEMIDE
     Indication: OEDEMA PERIPHERAL
  13. SANVAL [Concomitant]
     Active Substance: ZOLPIDEM TARTRATE
     Indication: SLEEP DISORDER
     Route: 048
     Dates: start: 2019

REACTIONS (1)
  - Gait disturbance [Not Recovered/Not Resolved]

NARRATIVE: CASE EVENT DATE: 20210816
